FAERS Safety Report 11930817 (Version 1)
Quarter: 2016Q1

REPORT INFORMATION
  Report Type: Spontaneous
  Country: US (occurrence: None)
  Receive Date: 20160120
  Receipt Date: 20160120
  Transmission Date: 20160526
  Serious: Yes (Hospitalization)
  Sender: FDA-Public Use
  Company Number: None

PATIENT
  Age: 76 Year
  Sex: Male
  Weight: 72.7 kg

DRUGS (2)
  1. CASODEX [Suspect]
     Active Substance: BICALUTAMIDE
     Dates: end: 20151125
  2. ZOLADEX [Suspect]
     Active Substance: GOSERELIN ACETATE
     Dates: end: 20150929

REACTIONS (2)
  - Peripheral artery thrombosis [None]
  - Pyrexia [None]

NARRATIVE: CASE EVENT DATE: 20151126
